FAERS Safety Report 5987637-3 (Version None)
Quarter: 2008Q4

REPORT INFORMATION
  Report Type: 
  Country: None (occurrence: None)
  Receive Date: 20081209
  Receipt Date: 20081124
  Transmission Date: 20090506
  Serious: No
  Sender: FDA-Public Use
  Company Number: US-B.I. PHARMACEUTICALS,INC./RIDGEFIELD-2008-BP-14112BP

PATIENT
  Sex: Male

DRUGS (3)
  1. COMBIVENT [Suspect]
     Indication: DYSPNOEA
     Dates: start: 20080821
  2. LOVENOX [Concomitant]
     Dosage: 30MG
     Dates: start: 20080920, end: 20080921
  3. LOVENOX [Concomitant]
     Dosage: 100MG
     Dates: start: 20080815, end: 20080820

REACTIONS (3)
  - DYSPNOEA [None]
  - HEART RATE INCREASED [None]
  - PAIN IN EXTREMITY [None]
